FAERS Safety Report 9920909 (Version 1)
Quarter: 2014Q1

REPORT INFORMATION
  Report Type: Spontaneous
  Country: NL (occurrence: NL)
  Receive Date: 20140225
  Receipt Date: 20140225
  Transmission Date: 20141002
  Serious: Yes (Hospitalization)
  Sender: FDA-Public Use
  Company Number: NL-JNJFOC-20140211489

PATIENT
  Age: 45 Year
  Sex: Female
  Weight: 144 kg

DRUGS (14)
  1. GYNO-DAKTARIN-1 [Suspect]
     Route: 067
  2. DAKTARIN [Suspect]
     Indication: VULVOVAGINAL CANDIDIASIS
     Route: 067
     Dates: start: 20140122
  3. PANTOPAC [Suspect]
     Indication: HELICOBACTER INFECTION
     Route: 048
     Dates: start: 20140115, end: 20140122
  4. EMCOR [Concomitant]
     Indication: OBSTRUCTIVE AIRWAYS DISORDER
     Route: 048
  5. CETOSTEARYL ALCOHOL [Concomitant]
     Route: 003
  6. EMOLLIENTS AND PROTECTIVES [Concomitant]
     Indication: OBSTRUCTIVE AIRWAYS DISORDER
     Route: 003
  7. PREDNISOLONE [Concomitant]
     Indication: OBSTRUCTIVE AIRWAYS DISORDER
     Route: 048
  8. PREDNISOLONE [Concomitant]
     Indication: OBSTRUCTIVE AIRWAYS DISORDER
     Route: 048
  9. PERINDOPRIL [Concomitant]
     Route: 048
  10. ACETYLSALICYLZUUR CARDIO [Concomitant]
     Indication: OBSTRUCTIVE AIRWAYS DISORDER
     Route: 048
  11. SYMBICORT TURBUHALER [Concomitant]
     Indication: OBSTRUCTIVE AIRWAYS DISORDER
     Route: 055
  12. CITALOPRAM [Concomitant]
     Indication: OBSTRUCTIVE AIRWAYS DISORDER
     Route: 048
  13. HYDROCHLOROTHIAZIDE [Concomitant]
     Route: 048
  14. METFORMIN [Concomitant]
     Route: 048

REACTIONS (2)
  - Dermatitis exfoliative [Recovering/Resolving]
  - Malaise [Unknown]
